FAERS Safety Report 23934731 (Version 2)
Quarter: 2024Q2

REPORT INFORMATION
  Report Type: Spontaneous
  Country: FI (occurrence: FI)
  Receive Date: 20240603
  Receipt Date: 20240605
  Transmission Date: 20240716
  Serious: Yes (Hospitalization, Other)
  Sender: FDA-Public Use
  Company Number: FI-CHEPLA-2024005525

PATIENT
  Age: 57 Year
  Sex: Female

DRUGS (13)
  1. SPORANOX [Suspect]
     Active Substance: ITRACONAZOLE
     Indication: Candida infection
     Route: 065
  2. POSACONAZOLE [Suspect]
     Active Substance: POSACONAZOLE
     Indication: Candida infection
     Route: 065
  3. CASPOFUNGIN [Suspect]
     Active Substance: CASPOFUNGIN
     Indication: Product used for unknown indication
     Route: 065
  4. FLUCONAZOLE [Suspect]
     Active Substance: FLUCONAZOLE
     Indication: Candida infection
     Dosage: 100 MG X 2
     Route: 065
     Dates: start: 2009
  5. FLUCONAZOLE [Suspect]
     Active Substance: FLUCONAZOLE
     Route: 065
     Dates: start: 2012
  6. FLUCONAZOLE [Suspect]
     Active Substance: FLUCONAZOLE
     Route: 065
  7. FLUCONAZOLE [Suspect]
     Active Substance: FLUCONAZOLE
     Route: 065
     Dates: end: 202104
  8. FLUCONAZOLE [Suspect]
     Active Substance: FLUCONAZOLE
     Dosage: 150 MG X 2 FLUCONAZOLE FOR 3 WEEKS
     Route: 065
  9. FLUCONAZOLE [Suspect]
     Active Substance: FLUCONAZOLE
     Dosage: 100 MG X 2
     Route: 065
  10. NYSTATIN [Suspect]
     Active Substance: NYSTATIN
     Indication: Candida infection
     Route: 065
     Dates: start: 200901, end: 202103
  11. VORICONAZOLE [Suspect]
     Active Substance: VORICONAZOLE
     Indication: Polyglandular autoimmune syndrome type I
     Route: 065
     Dates: start: 200806
  12. AMPHOTERICIN B [Suspect]
     Active Substance: AMPHOTERICIN B
     Indication: Polyglandular autoimmune syndrome type I
     Route: 042
     Dates: start: 200806
  13. AMBISOME [Suspect]
     Active Substance: AMPHOTERICIN B

REACTIONS (6)
  - Oropharyngeal candidiasis [Unknown]
  - Erythema [Unknown]
  - Multiple-drug resistance [Unknown]
  - Tremor [Unknown]
  - Fatigue [Unknown]
  - Nausea [Unknown]

NARRATIVE: CASE EVENT DATE: 20080101
